FAERS Safety Report 16161241 (Version 1)
Quarter: 2019Q2

REPORT INFORMATION
  Report Type: Spontaneous
  Country: DE (occurrence: DE)
  Receive Date: 20190405
  Receipt Date: 20190405
  Transmission Date: 20190711
  Serious: Yes (Other)
  Sender: FDA-Public Use
  Company Number: DE-HIKMA PHARMACEUTICALS USA INC.-DE-H14001-19-02151

PATIENT
  Age: 45 Year
  Sex: Male
  Weight: 85 kg

DRUGS (1)
  1. CEFUROXIME. [Suspect]
     Active Substance: CEFUROXIME
     Indication: PRODUCT USED FOR UNKNOWN INDICATION
     Route: 042

REACTIONS (7)
  - Hypersensitivity [Recovered/Resolved]
  - Erythema [Recovered/Resolved]
  - Blood pressure decreased [Recovered/Resolved]
  - Sensation of foreign body [Recovered/Resolved]
  - Thirst [Recovered/Resolved]
  - Nausea [Recovered/Resolved]
  - Retching [Recovered/Resolved]

NARRATIVE: CASE EVENT DATE: 20190226
